FAERS Safety Report 9483865 (Version 1)
Quarter: 2013Q3

REPORT INFORMATION
  Report Type: Spontaneous
  Country: JP (occurrence: JP)
  Receive Date: 20130828
  Receipt Date: 20130828
  Transmission Date: 20140515
  Serious: Yes (Death, Other)
  Sender: FDA-Public Use
  Company Number: PHHY2013JP092215

PATIENT
  Age: 22 Year
  Sex: Male

DRUGS (5)
  1. CICLOSPORIN [Suspect]
     Indication: RENAL TRANSPLANT
     Dosage: 420 MG, DAILY
  2. AZATHIOPRINE [Suspect]
     Indication: RENAL TRANSPLANT
     Dosage: 100 MG, DAILY
  3. PREDNISOLONE [Concomitant]
     Indication: RENAL TRANSPLANT
     Dosage: 70 MG, DAILY
  4. ANTILYMPHOCYTE GLOBULIN [Concomitant]
     Indication: RENAL TRANSPLANT
     Dosage: 1 G, DAILY
  5. MUROMONAB-CD3 [Concomitant]

REACTIONS (5)
  - Sudden death [Fatal]
  - Haemolytic anaemia [Recovering/Resolving]
  - Haemolytic uraemic syndrome [Recovering/Resolving]
  - Thrombocytopenia [Recovering/Resolving]
  - Renal failure [Recovering/Resolving]
